FAERS Safety Report 4937609-2 (Version None)
Quarter: 2006Q1

REPORT INFORMATION
  Report Type: 
  Country: None (occurrence: None)
  Receive Date: 20060309
  Receipt Date: 20060227
  Transmission Date: 20060701
  Serious: Yes (Hospitalization)
  Sender: FDA-Public Use
  Company Number: US-MERCK-0603USA00023

PATIENT
  Sex: Female
  Weight: 68 kg

DRUGS (2)
  1. VIOXX [Suspect]
     Route: 048
     Dates: end: 20040801
  2. [THERAPY UNSPECIFIED] [Concomitant]
     Route: 065

REACTIONS (6)
  - ARTHROPATHY [None]
  - CHEST PAIN [None]
  - GASTRIC DISORDER [None]
  - HOSPITALISATION [None]
  - HYPERTENSION [None]
  - PALPITATIONS [None]
